FAERS Safety Report 8547878-8 (Version None)
Quarter: 2012Q3

REPORT INFORMATION
  Report Type: 
  Country: None (occurrence: None)
  Receive Date: 20120728
  Receipt Date: 20120716
  Transmission Date: 20120928
  Serious: Yes (Hospitalization)
  Sender: FDA-Public Use
  Company Number: FR-009507513-1207FRA009468

PATIENT

DRUGS (11)
  1. PREDNISOLONE [Concomitant]
     Indication: OEDEMA
     Dosage: UNK
     Dates: start: 20120711
  2. GLUCOPHAGE [Concomitant]
     Indication: DIABETES MELLITUS
     Dosage: UNK
     Dates: start: 20120414
  3. KEPPRA [Concomitant]
     Indication: EPILEPSY
     Dosage: UNK
     Dates: start: 20120415
  4. ATORVASTATIN [Concomitant]
     Indication: BLOOD CHOLESTEROL
     Dosage: UNK
     Dates: start: 20120711
  5. SOTALOL HYDROCHLORIDE [Concomitant]
     Indication: HYPERTENSION
     Dosage: UNK
     Dates: start: 20120711
  6. TEMOZOLOMIDE [Suspect]
     Indication: GLIOBLASTOMA
     Dosage: UNK, QD
     Route: 048
     Dates: start: 20120626, end: 20120711
  7. PANTOPRAZOLE SODIUM [Concomitant]
     Indication: OESOPHAGITIS
     Dosage: UNK
     Dates: start: 20120414
  8. CLOBAZAM [Concomitant]
     Indication: EPILEPSY
     Dosage: UNK
     Dates: start: 20120711
  9. CERVOXAN [Concomitant]
     Indication: COGNITIVE DISORDER
     Dosage: UNK
     Dates: start: 20120618
  10. ESCITALOPRAM [Concomitant]
     Indication: ANXIETY
     Dosage: UNK
     Dates: start: 20120706
  11. PHENYTOIN SODIUM [Concomitant]
     Indication: EPILEPSY
     Dosage: UNK
     Dates: start: 20120711

REACTIONS (2)
  - LETHARGY [None]
  - CONVULSION [None]
